FAERS Safety Report 8965376 (Version 2)
Quarter: 2013Q1

REPORT INFORMATION
  Report Type: Report from Study
  Country: JP (occurrence: JP)
  Receive Date: 20121213
  Receipt Date: 20130226
  Transmission Date: 20140127
  Serious: Yes (Death, Other)
  Sender: FDA-Public Use
  Company Number: JP-BRISTOL-MYERS SQUIBB COMPANY-17074147

PATIENT
  Age: 75 Year
  Sex: Female

DRUGS (5)
  1. SPRYCEL [Suspect]
     Indication: ACUTE LYMPHOCYTIC LEUKAEMIA
     Dosage: INCREASED TO 100MG 13JUL12-23OCT2012?9JUL-12JUL12 50MG
     Route: 048
     Dates: start: 20120709, end: 20121023
  2. ONCOVIN [Suspect]
     Indication: ACUTE LYMPHOCYTIC LEUKAEMIA
     Dates: start: 20120706, end: 20120706
  3. PREDONINE [Suspect]
     Indication: ACUTE LYMPHOCYTIC LEUKAEMIA
     Dates: start: 20120706, end: 20120718
  4. MAGMITT [Concomitant]
     Route: 048
  5. TAKEPRON [Concomitant]
     Indication: PROPHYLAXIS
     Route: 048
     Dates: start: 20120713

REACTIONS (2)
  - Stress cardiomyopathy [Fatal]
  - Disseminated intravascular coagulation [Recovered/Resolved]
